FAERS Safety Report 7203857-4 (Version None)
Quarter: 2010Q4

REPORT INFORMATION
  Report Type: 
  Country: None (occurrence: None)
  Receive Date: 20101230
  Receipt Date: 20101220
  Transmission Date: 20110411
  Serious: Yes (Hospitalization)
  Sender: FDA-Public Use
  Company Number: US-JNJFOC-20101203287

PATIENT
  Sex: Male
  Weight: 78.7 kg

DRUGS (22)
  1. DOXORUBICIN HYDROCHLORIDE [Suspect]
     Indication: MULTIPLE MYELOMA
     Route: 042
  2. BORTEZOMIB [Suspect]
     Indication: MULTIPLE MYELOMA
     Route: 042
  3. VORINOSTAT [Suspect]
     Indication: MULTIPLE MYELOMA
     Route: 048
  4. ALBUTEROL [Concomitant]
     Route: 065
  5. FENTANYL-100 [Concomitant]
     Indication: BACK PAIN
     Route: 062
  6. OXYCODONE HCL [Concomitant]
     Indication: PAIN
     Route: 065
  7. FLAGYL [Concomitant]
     Indication: DIARRHOEA
     Route: 065
  8. ZOFRAN [Concomitant]
     Dosage: AS NECESSARY (P.R.N.)
     Route: 048
  9. ATIVAN [Concomitant]
     Indication: NAUSEA
     Dosage: AS NECESSARY (P.R.N.)
     Route: 048
  10. ATIVAN [Concomitant]
     Indication: VOMITING
     Dosage: AS NECESSARY (P.R.N.)
     Route: 048
  11. FLUCONAZOLE [Concomitant]
     Route: 065
  12. ACYCLOVIR SODIUM [Concomitant]
     Indication: HERPES ZOSTER
     Route: 048
  13. LANTUS [Concomitant]
     Route: 058
  14. VITAMIN D [Concomitant]
     Route: 048
  15. CLONIDINE [Concomitant]
     Route: 048
  16. ALLOPURINOL [Concomitant]
     Route: 048
  17. OMEPRAZOLE [Concomitant]
     Route: 048
  18. DIOVAN [Concomitant]
     Route: 048
  19. NOVOLOG [Concomitant]
     Dosage: AS NECESSARY (P.R.N.)
     Route: 065
  20. GABAPENTIN [Concomitant]
     Dosage: AS NECESSARY (P.R.N.)
     Route: 048
  21. PAROXETINE HCL [Concomitant]
     Route: 048
  22. UNSPECIFIED MOUTHWASH [Concomitant]
     Dosage: SWISH AND SPIT
     Route: 048

REACTIONS (1)
  - HYPERTENSION [None]
